FAERS Safety Report 10185488 (Version 2)
Quarter: 2014Q2

REPORT INFORMATION
  Report Type: Spontaneous
  Country: US (occurrence: US)
  Receive Date: 20140521
  Receipt Date: 20140620
  Transmission Date: 20141212
  Serious: No
  Sender: FDA-Public Use
  Company Number: US-009507513-1405USA008433

PATIENT
  Age: 69 Year
  Sex: Female
  Weight: 78.46 kg

DRUGS (9)
  1. OXYTROL FOR WOMEN [Suspect]
     Indication: HYPERTONIC BLADDER
     Dosage: 1 DF, Q4D
     Route: 062
     Dates: start: 201311
  2. METOPROLOL [Concomitant]
     Indication: CARDIAC DISORDER
     Dosage: UNK, UNKNOWN
  3. ASPIRIN [Concomitant]
     Indication: CARDIAC DISORDER
     Dosage: UNK, UNKNOWN
  4. PLAVIX [Concomitant]
     Indication: CARDIAC DISORDER
     Dosage: UNK, UNKNOWN
  5. CRESTOR [Concomitant]
     Indication: BLOOD CHOLESTEROL
     Dosage: UNK, UNKNOWN
  6. LEXAPRO [Concomitant]
     Indication: DEPRESSION
     Dosage: UNK, UNKNOWN
  7. LISINOPRIL [Concomitant]
     Indication: FLUID RETENTION
     Dosage: UNK, UNKNOWN
  8. SYMBICORT [Concomitant]
     Indication: ASTHMA
     Dosage: UNK, UNKNOWN
  9. SYMBICORT [Concomitant]
     Indication: HYPERSENSITIVITY

REACTIONS (2)
  - Application site irritation [Unknown]
  - Product adhesion issue [Unknown]
